FAERS Safety Report 20401657 (Version 2)
Quarter: 2022Q1

REPORT INFORMATION
  Report Type: Spontaneous
  Country: US (occurrence: US)
  Receive Date: 20220131
  Receipt Date: 20220201
  Transmission Date: 20220423
  Serious: No
  Sender: FDA-Public Use
  Company Number: US-ABBVIE-21K-163-4198861-00

PATIENT
  Sex: Male
  Weight: 72.5 kg

DRUGS (6)
  1. HUMIRA [Suspect]
     Active Substance: ADALIMUMAB
     Indication: Rheumatoid arthritis
     Route: 058
     Dates: end: 2015
  2. XELJANZ XR [Suspect]
     Active Substance: TOFACITINIB CITRATE
     Indication: Rheumatoid arthritis
     Route: 048
     Dates: start: 2016, end: 202104
  3. XELJANZ XR [Suspect]
     Active Substance: TOFACITINIB CITRATE
     Route: 048
     Dates: start: 202105, end: 20211208
  4. COVID-19 VACCINE NOS [Suspect]
     Active Substance: COVID-19 VACCINE NOS
     Indication: COVID-19 immunisation
     Route: 030
     Dates: start: 20210511, end: 20210511
  5. COVID-19 VACCINE NOS [Suspect]
     Active Substance: COVID-19 VACCINE NOS
     Dosage: BOOSTER
     Route: 030
     Dates: start: 20211209, end: 20211209
  6. LEVOTHYROXINE [Concomitant]
     Active Substance: LEVOTHYROXINE
     Indication: Thyroid disorder
     Dosage: DOSE GOES UP AD DOWN FROM 100 TO 125MG
     Dates: start: 2011

REACTIONS (5)
  - Skin fissures [Not Recovered/Not Resolved]
  - Onychomadesis [Not Recovered/Not Resolved]
  - Inappropriate schedule of product discontinuation [Unknown]
  - Immunosuppression [Unknown]
  - Drug ineffective [Unknown]
